FAERS Safety Report 7085716-3 (Version None)
Quarter: 2010Q4

REPORT INFORMATION
  Report Type: 
  Country: None (occurrence: None)
  Receive Date: 20101105
  Receipt Date: 20101029
  Transmission Date: 20110411
  Serious: Yes (Other)
  Sender: FDA-Public Use
  Company Number: US-SANOFI-AVENTIS-2010SA054968

PATIENT
  Age: 39 Year
  Sex: Female

DRUGS (3)
  1. OPTICLICK [Suspect]
     Dosage: DOSE:29 UNIT(S)
     Route: 058
  2. LANTUS [Suspect]
     Dosage: DOSE:29 UNIT(S)
     Route: 058
  3. HUMALOG [Concomitant]

REACTIONS (3)
  - HYPOGLYCAEMIC UNCONSCIOUSNESS [None]
  - PRODUCT QUALITY ISSUE [None]
  - VOMITING [None]
